FAERS Safety Report 12392686 (Version 2)
Quarter: 2016Q2

REPORT INFORMATION
  Report Type: Spontaneous
  Country: US (occurrence: US)
  Receive Date: 20160523
  Receipt Date: 20160531
  Transmission Date: 20160815
  Serious: Yes (Other)
  Sender: FDA-Public Use
  Company Number: US-APOTEX-2016AP008539

PATIENT
  Sex: Male

DRUGS (1)
  1. METFORMIN HYDROCHLORIDE. [Suspect]
     Active Substance: METFORMIN HYDROCHLORIDE
     Indication: PRODUCT USED FOR UNKNOWN INDICATION
     Dosage: UNK
     Route: 048

REACTIONS (5)
  - Accidental exposure to product [Recovering/Resolving]
  - Coma [Recovering/Resolving]
  - Ventricular arrhythmia [Recovering/Resolving]
  - Metabolic acidosis [Recovering/Resolving]
  - Agitation [Recovering/Resolving]
